FAERS Safety Report 4650811-2 (Version None)
Quarter: 2005Q2

REPORT INFORMATION
  Report Type: 
  Country: None (occurrence: None)
  Receive Date: 20050503
  Receipt Date: 20050422
  Transmission Date: 20051028
  Serious: Yes (Hospitalization)
  Sender: FDA-Public Use
  Company Number: 2004-0480

PATIENT
  Sex: Female
  Weight: 61 kg

DRUGS (10)
  1. QUILONORM RETARD [Suspect]
     Dosage: 450MG PER DAY
     Route: 048
     Dates: end: 20040512
  2. BRUFEN [Suspect]
     Indication: PAIN
     Dosage: 400MG UNKNOWN
     Route: 048
     Dates: end: 20040512
  3. ALEVE [Suspect]
     Indication: PAIN
     Route: 048
     Dates: end: 20040512
  4. SEROQUEL [Suspect]
     Dosage: 25MG PER DAY
     Route: 048
     Dates: end: 20040512
  5. NOVALGINE [Concomitant]
  6. BUSCOPAN [Concomitant]
  7. DEMETRIN [Concomitant]
  8. ACETAMINOPHEN [Concomitant]
  9. SOLATRAN [Concomitant]
  10. XANAX [Concomitant]

REACTIONS (4)
  - COORDINATION ABNORMAL [None]
  - DRUG INTERACTION [None]
  - DYSARTHRIA [None]
  - RENAL FAILURE ACUTE [None]
